FAERS Safety Report 5936314-3 (Version None)
Quarter: 2008Q4

REPORT INFORMATION
  Report Type: 
  Country: None (occurrence: None)
  Receive Date: 20081030
  Receipt Date: 20081021
  Transmission Date: 20090506
  Serious: Yes (Other)
  Sender: FDA-Public Use
  Company Number: US-BAYER-200814138BCC

PATIENT
  Age: 68 Year
  Sex: Female
  Weight: 63 kg

DRUGS (4)
  1. ASPIRIN [Suspect]
     Indication: DRUG USE FOR UNKNOWN INDICATION
     Dosage: TOTAL DAILY DOSE: 81 MG  UNIT DOSE: 81 MG
  2. PLAVIX [Suspect]
     Indication: INTRACRANIAL ANEURYSM
     Dosage: TOTAL DAILY DOSE: 75 MG  UNIT DOSE: 75 MG
     Dates: start: 20080906
  3. ANTIHYPERTENSIVES [Concomitant]
  4. ESOMEPRAZOLE MAGNESIUM [Concomitant]

REACTIONS (8)
  - AMNESIA [None]
  - APHASIA [None]
  - BALANCE DISORDER [None]
  - CEREBROVASCULAR ACCIDENT [None]
  - DRY THROAT [None]
  - HYPOAESTHESIA ORAL [None]
  - SENSORY LOSS [None]
  - TRANSIENT ISCHAEMIC ATTACK [None]
